FAERS Safety Report 20979250 (Version 2)
Quarter: 2023Q1

REPORT INFORMATION
  Report Type: Report from Study
  Country: US (occurrence: US)
  Receive Date: 20220620
  Receipt Date: 20230303
  Transmission Date: 20230418
  Serious: Yes (Death, Hospitalization)
  Sender: FDA-Public Use
  Company Number: US-ABBVIE-22K-163-4437598-00

PATIENT
  Sex: Female

DRUGS (1)
  1. VENCLEXTA [Suspect]
     Active Substance: VENETOCLAX
     Indication: Acute myeloid leukaemia
     Dosage: TAKE 4 TABLET(S) BY MOUTH EVERY DAY FOR 5 DAYS AS DIRECTED
     Route: 048
     Dates: start: 202204

REACTIONS (3)
  - Death [Fatal]
  - Chemotherapy [Unknown]
  - Intentional product use issue [Unknown]
